FAERS Safety Report 8616136 (Version 4)
Quarter: 2013Q4

REPORT INFORMATION
  Report Type: Report from Study
  Country: US (occurrence: US)
  Receive Date: 20120614
  Receipt Date: 20131017
  Transmission Date: 20140711
  Serious: Yes (Hospitalization)
  Sender: FDA-Public Use
  Company Number: US-CELGENEUS-163-50794-12060766

PATIENT
  Age: 72 Year
  Sex: Female
  Weight: 60 kg

DRUGS (7)
  1. VIDAZA [Suspect]
     Indication: ACUTE MYELOID LEUKAEMIA
     Route: 058
     Dates: start: 20120312, end: 20120318
  2. HYDROXYUREA [Suspect]
     Indication: ACUTE MYELOID LEUKAEMIA
     Dosage: 3000 MILLIGRAM
     Route: 048
     Dates: start: 20120312, end: 20120322
  3. GEMTUZUMAB OZOGAMICIN [Suspect]
     Indication: ACUTE MYELOID LEUKAEMIA
     Route: 041
     Dates: start: 20120319, end: 20120319
  4. TOPROL XL [Concomitant]
     Indication: PRODUCT USED FOR UNKNOWN INDICATION
     Route: 065
  5. LISINOPRIL [Concomitant]
     Indication: PRODUCT USED FOR UNKNOWN INDICATION
     Route: 065
  6. DIGOXIN [Concomitant]
     Indication: PRODUCT USED FOR UNKNOWN INDICATION
     Route: 065
  7. HYDRALAZINE [Concomitant]
     Indication: PRODUCT USED FOR UNKNOWN INDICATION
     Route: 065

REACTIONS (4)
  - Conduction disorder [Recovering/Resolving]
  - Dyspnoea [Recovering/Resolving]
  - Pulmonary oedema [Recovering/Resolving]
  - Left ventricular dysfunction [Recovering/Resolving]
